FAERS Safety Report 5386201-7 (Version None)
Quarter: 2007Q3

REPORT INFORMATION
  Report Type: 
  Country: None (occurrence: None)
  Receive Date: 20070713
  Receipt Date: 20070709
  Transmission Date: 20080115
  Serious: Yes (Life-Threatening, Other)
  Sender: FDA-Public Use
  Company Number: PHEH2007US08550

PATIENT
  Age: 57 Year
  Sex: Female
  Weight: 150 kg

DRUGS (7)
  1. FUROSEMIDE [Concomitant]
     Indication: FLUID RETENTION
     Dosage: 20 MG, QD
  2. HORMONES NOS [Concomitant]
     Indication: HORMONE REPLACEMENT THERAPY
  3. ZELNORM [Suspect]
     Indication: IRRITABLE BOWEL SYNDROME
     Dosage: 6 MG, UNK
     Route: 048
     Dates: start: 20010101, end: 20070401
  4. ACIPHEX [Concomitant]
     Indication: GASTROOESOPHAGEAL REFLUX DISEASE
     Dosage: 20 MG, QD
     Dates: start: 20020101
  5. CRESTOR [Concomitant]
     Indication: HYPERCHOLESTEROLAEMIA
     Dosage: 10 MG, QD
     Dates: start: 20030101
  6. XANAX [Concomitant]
     Dosage: 0.5 MG, TID
  7. PLAVIX [Concomitant]
     Dates: start: 20060101

REACTIONS (8)
  - ATRIOVENTRICULAR BLOCK [None]
  - BLOOD CHOLESTEROL INCREASED [None]
  - CARDIAC OPERATION [None]
  - CATHETERISATION CARDIAC [None]
  - HYPERTENSION [None]
  - STENT PLACEMENT [None]
  - VASCULAR GRAFT [None]
  - VENTRICULAR FIBRILLATION [None]
